FAERS Safety Report 24768629 (Version 2)
Quarter: 2025Q1

REPORT INFORMATION
  Report Type: Spontaneous
  Country: ES (occurrence: ES)
  Receive Date: 20241224
  Receipt Date: 20250108
  Transmission Date: 20250408
  Serious: Yes (Other)
  Sender: JOHNSON AND JOHNSON
  Company Number: None

PATIENT
  Age: 26 Year
  Sex: Male

DRUGS (2)
  1. RILPIVIRINE [Suspect]
     Active Substance: RILPIVIRINE
     Indication: HIV infection
     Dosage: 1 DF, Q4W (1.0 VIAL EVERY 28 DAYS)
     Route: 030
     Dates: start: 20240916, end: 20241205
  2. CABOTEGRAVIR [Suspect]
     Active Substance: CABOTEGRAVIR
     Indication: HIV infection
     Dosage: 1 DF, Q4W (1.0 VIAL EVERY 28 DAYS)
     Route: 030
     Dates: start: 20240916, end: 20241205

REACTIONS (3)
  - Suicide attempt [Recovering/Resolving]
  - Anxiety [Recovering/Resolving]
  - Tic [Recovering/Resolving]

NARRATIVE: CASE EVENT DATE: 20241101
